FAERS Safety Report 6688097-X (Version None)
Quarter: 2010Q2

REPORT INFORMATION
  Report Type: 
  Country: None (occurrence: None)
  Receive Date: 20100412
  Receipt Date: 20100107
  Transmission Date: 20101027
  Serious: No
  Sender: FDA-Public Use
  Company Number: 1000011182

PATIENT
  Age: 63 Year
  Sex: Female

DRUGS (6)
  1. BYSTOLIC [Suspect]
     Indication: HYPERTENSION
     Dosage: 10 MG (10 MG, 1 IN 1 D), ORAL
     Route: 048
     Dates: start: 20090801, end: 20091101
  2. BYSTOLIC [Suspect]
     Indication: HYPERTENSION
     Dosage: 20 MG (20 MG, 1 IN 1 D), ORAL : 10 MG (10 MG, 1 IN 1 D), ORAL : 15 MG (15 MG, 1 IN 1 D), ORAL
     Route: 048
     Dates: start: 20090101, end: 20090101
  3. BYSTOLIC [Suspect]
     Indication: HYPERTENSION
     Dosage: 20 MG (20 MG, 1 IN 1 D), ORAL : 10 MG (10 MG, 1 IN 1 D), ORAL : 15 MG (15 MG, 1 IN 1 D), ORAL
     Route: 048
     Dates: start: 20091101, end: 20091101
  4. BYSTOLIC [Suspect]
     Indication: HYPERTENSION
     Dosage: 20 MG (20 MG, 1 IN 1 D), ORAL : 10 MG (10 MG, 1 IN 1 D), ORAL : 15 MG (15 MG, 1 IN 1 D), ORAL
     Route: 048
     Dates: start: 20090101
  5. FELODIPINE [Concomitant]
  6. PRAVASTATIN [Concomitant]

REACTIONS (3)
  - CHEST PAIN [None]
  - DIZZINESS [None]
  - DYSPNOEA [None]
